FAERS Safety Report 21693273 (Version 4)
Quarter: 2023Q1

REPORT INFORMATION
  Report Type: Spontaneous
  Country: FR (occurrence: FR)
  Receive Date: 20221207
  Receipt Date: 20230117
  Transmission Date: 20230418
  Serious: Yes (Disabling, Other)
  Sender: FDA-Public Use
  Company Number: FR-CELLTRION INC.-2022FR020487

PATIENT

DRUGS (4)
  1. INFLIXIMAB [Suspect]
     Active Substance: INFLIXIMAB
     Indication: Colitis ulcerative
     Dosage: 5 MG/KG
     Route: 042
  2. INFLIXIMAB [Suspect]
     Active Substance: INFLIXIMAB
     Indication: Colitis ulcerative
     Dosage: 120 MG, 1 PEN EVERY 2 WEEKS
     Route: 058
  3. INFLIXIMAB [Suspect]
     Active Substance: INFLIXIMAB
     Dosage: 1 DF EVERY CYCLE, 1 PEN EVERY 2 WEEKS
     Route: 058
  4. AZATHIOPRINE SODIUM [Suspect]
     Active Substance: AZATHIOPRINE SODIUM
     Indication: Colitis ulcerative
     Dosage: UNK

REACTIONS (5)
  - Eyelid oedema [Recovering/Resolving]
  - Eyelids pruritus [Recovering/Resolving]
  - Pruritus [Recovered/Resolved]
  - Dermatitis bullous [Recovering/Resolving]
  - Rash [Recovering/Resolving]
